FAERS Safety Report 20375268 (Version 1)
Quarter: 2022Q1

REPORT INFORMATION
  Report Type: Spontaneous
  Country: US (occurrence: None)
  Receive Date: 20220124
  Receipt Date: 20220124
  Transmission Date: 20220423
  Serious: Yes (Life-Threatening, Hospitalization, Other)
  Sender: FDA-Public Use
  Company Number: None

PATIENT
  Age: 62 Year
  Sex: Male
  Weight: 115.7 kg

DRUGS (1)
  1. FARXIGA [Suspect]
     Active Substance: DAPAGLIFLOZIN PROPANEDIOL
     Indication: Diabetes mellitus
     Dosage: FREQUENCY : DAILY;?
     Route: 048
     Dates: start: 20211013, end: 20211221

REACTIONS (2)
  - Septic shock [None]
  - Fournier^s gangrene [None]

NARRATIVE: CASE EVENT DATE: 20211128
